FAERS Safety Report 9533472 (Version 1)
Quarter: 2013Q3

REPORT INFORMATION
  Report Type: Spontaneous
  Country: US (occurrence: US)
  Receive Date: 20130918
  Receipt Date: 20130918
  Transmission Date: 20140515
  Serious: No
  Sender: FDA-Public Use
  Company Number: US-PURDUE-USA-2011-0077988

PATIENT
  Age: 43 Year
  Sex: Male

DRUGS (2)
  1. BUTRANS [Suspect]
     Indication: FIBROMYALGIA
     Dosage: 20 MCG/HR, UNK
     Dates: start: 201110
  2. BUTRANS [Suspect]
     Indication: PAIN

REACTIONS (2)
  - Balance disorder [Not Recovered/Not Resolved]
  - Feeling abnormal [Not Recovered/Not Resolved]
